FAERS Safety Report 19002200 (Version 2)
Quarter: 2021Q2

REPORT INFORMATION
  Report Type: Spontaneous
  Country: FR (occurrence: FR)
  Receive Date: 20210312
  Receipt Date: 20210407
  Transmission Date: 20210717
  Serious: Yes (Hospitalization, Other)
  Sender: FDA-Public Use
  Company Number: FR-SA-2021SA081842

PATIENT
  Age: 70 Year
  Sex: Male
  Weight: 125 kg

DRUGS (5)
  1. FUROSEMIDE. [Suspect]
     Active Substance: FUROSEMIDE
     Indication: HYPERTENSION
     Route: 048
     Dates: end: 20210216
  2. ACIDE FUSIDIQUE ZENTIVA [Suspect]
     Active Substance: FUSIDIC ACID
     Indication: FOLATE DEFICIENCY
     Dosage: 4 DF, QD
     Route: 048
     Dates: start: 20210213, end: 20210216
  3. IOMERON [Suspect]
     Active Substance: IOMEPROL
     Indication: COMPUTERISED TOMOGRAM ABDOMEN
     Dosage: 120 ML, TOTAL
     Route: 054
     Dates: start: 20210214, end: 20210214
  4. DIFFUNDOX [Suspect]
     Active Substance: TAMSULOSIN HYDROCHLORIDE
     Indication: HYPOKALAEMIA
     Dosage: 6 DF, QD
     Route: 048
     Dates: start: 20210213, end: 20210216
  5. SURBRONC 60 MG COMPRIMES PELLICULES [Suspect]
     Active Substance: AMBROXOL HYDROCHLORIDE
     Indication: GOUT
     Dosage: 1 DF, QD
     Route: 048
     Dates: end: 20210216

REACTIONS (2)
  - Overdose [Unknown]
  - Acute kidney injury [Recovering/Resolving]

NARRATIVE: CASE EVENT DATE: 20200213
